FAERS Safety Report 20042181 (Version 1)
Quarter: 2021Q4

REPORT INFORMATION
  Report Type: Spontaneous
  Country: US (occurrence: US)
  Receive Date: 20211108
  Receipt Date: 20211108
  Transmission Date: 20220303
  Serious: No
  Sender: FDA-Public Use
  Company Number: US-APOTEX-2021AP010189

PATIENT
  Age: 69 Year
  Sex: Male

DRUGS (2)
  1. TAMOXIFEN [Suspect]
     Active Substance: TAMOXIFEN
     Indication: Cancer hormonal therapy
     Dosage: 20 MILLIGRAM, QD (DAILY)
     Route: 065
  2. TAMOXIFEN [Suspect]
     Active Substance: TAMOXIFEN
     Indication: Breast cancer male

REACTIONS (3)
  - Malaise [Unknown]
  - Drug intolerance [Unknown]
  - Headache [Unknown]
